FAERS Safety Report 6932503-X (Version None)
Quarter: 2010Q3

REPORT INFORMATION
  Report Type: 
  Country: None (occurrence: None)
  Receive Date: 20100817
  Receipt Date: 20100804
  Transmission Date: 20110219
  Serious: Yes (Hospitalization)
  Sender: FDA-Public Use
  Company Number: UTC-001307

PATIENT
  Age: 9 Year
  Sex: Female
  Weight: 26.8 kg

DRUGS (8)
  1. REMODULIN [Suspect]
     Dosage: 35.4528 UG/KG (0.02462 UG/KG, 1 IN 1 MIN), INTRAVENOUS
     Route: 042
     Dates: start: 20100707
  2. MEPHYTON (PHYTOMENADIONE) [Concomitant]
  3. LACTULOSE [Concomitant]
  4. FUROSEMIDE [Concomitant]
  5. REVATIO [Concomitant]
  6. OMEPRAZOLE [Concomitant]
  7. URSODIOL [Concomitant]
  8. PROPRANOLOL [Concomitant]

REACTIONS (3)
  - DIZZINESS [None]
  - HEADACHE [None]
  - PYREXIA [None]
